FAERS Safety Report 12608841 (Version 1)
Quarter: 2016Q3

REPORT INFORMATION
  Report Type: Spontaneous
  Country: GB (occurrence: GB)
  Receive Date: 20160729
  Receipt Date: 20160729
  Transmission Date: 20161109
  Serious: Yes (Other)
  Sender: FDA-Public Use
  Company Number: GB-JNJFOC-20160715745

PATIENT
  Age: 85 Year
  Sex: Female
  Weight: 65 kg

DRUGS (24)
  1. IBUPROFEN. [Suspect]
     Active Substance: IBUPROFEN
     Indication: PRODUCT USED FOR UNKNOWN INDICATION
     Route: 065
     Dates: start: 20160701
  2. CALCITRIOL. [Concomitant]
     Active Substance: CALCITRIOL
     Indication: PRODUCT USED FOR UNKNOWN INDICATION
     Dosage: 1 DOSE (UNITS UNSPECIFIED) ONCE A DAY. CUMULATIVE DOSE TO FIRST REACTION: 1039 (UNITS UNSPECIFIED)
     Route: 065
     Dates: start: 20130906
  3. SPIRONOLACTONE. [Concomitant]
     Active Substance: SPIRONOLACTONE
     Indication: PRODUCT USED FOR UNKNOWN INDICATION
     Dosage: 1 DOSE (UNITS UNSPECIFIED) ONCE A DAY. CUMULATIVE DOSE TO FIRST REACTION: 33 (UNITS UNSPECIFIED)
     Route: 065
     Dates: start: 20160608
  4. AMLODIPINE [Concomitant]
     Active Substance: AMLODIPINE BESYLATE
     Indication: PRODUCT USED FOR UNKNOWN INDICATION
     Dosage: 1 DOSE (UNIT UNSPECIFIED) PER DAY.??CUMULATIVE DOSE TO FIRST REACTION: 1039 (UNITS UNSPECIFIED)
     Route: 065
     Dates: start: 20130906, end: 20160422
  5. FUROSEMIDE. [Concomitant]
     Active Substance: FUROSEMIDE
     Indication: PRODUCT USED FOR UNKNOWN INDICATION
     Dosage: 1 DOSE (UNIT UNSPECIFIED) PER DAY. CUMULATIVE DOSE TO FIRST REACTION: 55 (UNITS UNSPECIFIED).MORNING
     Route: 065
     Dates: start: 20160517
  6. GLYCERYL TRINITRATE [Concomitant]
     Active Substance: NITROGLYCERIN
     Indication: PRODUCT USED FOR UNKNOWN INDICATION
     Dosage: 1 DOSE (UNITS UNSPECIFIED) AS REQUIRED.
     Route: 065
     Dates: start: 20160609
  7. TIOTROPIUM [Concomitant]
     Active Substance: TIOTROPIUM
     Indication: PRODUCT USED FOR UNKNOWN INDICATION
     Dosage: 1 DOSE (UNITS UNSPECIFIED) ONCE A DAY. CUMULATIVE DOSE TO FIRST REACTION: 1039 (UNIT UNSPECIFIED).
     Route: 065
     Dates: start: 20130906
  8. ACIDEX [Concomitant]
     Active Substance: CALCIUM CARBONATE\SODIUM ALGINATE\SODIUM BICARBONATE
     Indication: PRODUCT USED FOR UNKNOWN INDICATION
     Dosage: 10 DOSES TWICE A DAY. CUMULATIVE DOSE TO FIRST REACTION: 8800
     Route: 065
     Dates: start: 20150428
  9. BISOPROLOL [Concomitant]
     Active Substance: BISOPROLOL
     Indication: PRODUCT USED FOR UNKNOWN INDICATION
     Dosage: 1 DOSE (UNITS UNSPECIFIED) ONCE A DAY.??CUMULATIVE DOSE TO FIRST REACTION: 479.958333
     Route: 065
     Dates: start: 20150319
  10. SALBUTAMOL [Concomitant]
     Active Substance: ALBUTEROL
     Indication: PRODUCT USED FOR UNKNOWN INDICATION
     Dosage: 2 DOSE AS REQUIRED.
     Route: 065
     Dates: start: 20130906
  11. PARACETAMOL [Concomitant]
     Active Substance: ACETAMINOPHEN
     Indication: PRODUCT USED FOR UNKNOWN INDICATION
     Dosage: TAKE 1 OR 2 FOUR TIMES PER DAY.
     Route: 065
     Dates: start: 20130906
  12. PREDNISOLONE. [Concomitant]
     Active Substance: PREDNISOLONE
     Indication: PRODUCT USED FOR UNKNOWN INDICATION
     Dosage: 6 DOSES (UNITS UNSPECIFIED) PER DAY.
     Route: 065
     Dates: start: 20160429, end: 20160504
  13. SENNA [Concomitant]
     Active Substance: SENNA LEAF\SENNOSIDES\SENNOSIDES A AND B
     Indication: PRODUCT USED FOR UNKNOWN INDICATION
     Dosage: TAKE 1 OR 2 AT NIGHT.
     Route: 065
     Dates: start: 20160701
  14. DOUBLEBASE [Concomitant]
     Active Substance: ISOPROPYL MYRISTATE\PARAFFIN
     Indication: PRODUCT USED FOR UNKNOWN INDICATION
     Dosage: AS REQUIRED.
     Route: 065
     Dates: start: 20130906
  15. ROSUVASTATIN. [Concomitant]
     Active Substance: ROSUVASTATIN
     Indication: PRODUCT USED FOR UNKNOWN INDICATION
     Dosage: 1 DOSE (UNITS UNSPECIFIED) PER DAY. CUMULATIVE DOSE TO FIRST REACTION: 1039 AT NIGHT
     Route: 065
     Dates: start: 20130906
  16. WARFARIN SODIUM. [Concomitant]
     Active Substance: WARFARIN SODIUM
     Indication: PRODUCT USED FOR UNKNOWN INDICATION
     Dosage: AS DIRECTED.
     Route: 065
     Dates: start: 20131220
  17. SALMETEROL [Concomitant]
     Active Substance: SALMETEROL
     Indication: PRODUCT USED FOR UNKNOWN INDICATION
     Dosage: 1 DOSE TWICE A DAY. CUMULATIVE DOSE TO FIRST REACTION: 2078
     Route: 065
     Dates: start: 20130906
  18. AMOXICILLIN. [Concomitant]
     Active Substance: AMOXICILLIN
     Indication: PRODUCT USED FOR UNKNOWN INDICATION
     Dosage: 1 DOSE (UNITS UNSPECIFIED) THRICE A DAY.CUMULATIVE DOSE TO FIRST REACTION: 15 (UNITS NOT REPORTED)
     Route: 065
     Dates: start: 20160706, end: 20160711
  19. MACROGOL [Concomitant]
     Active Substance: POLYETHYLENE GLYCOLS
     Indication: PRODUCT USED FOR UNKNOWN INDICATION
     Dosage: 1 TO 2 SACHETS TWICE DAILY
     Route: 065
     Dates: start: 20160701
  20. CARBOCISTEINE [Concomitant]
     Active Substance: CARBOCYSTEINE
     Indication: PRODUCT USED FOR UNKNOWN INDICATION
     Dosage: 1 DOSE (UNSPECIFIED UNIT) TWICE A DAY.??CUMULATIVE DOSE TO FIRST REACTION: 959.916666
     Route: 065
     Dates: start: 20150319
  21. FOLIC ACID. [Concomitant]
     Active Substance: FOLIC ACID
     Indication: PRODUCT USED FOR UNKNOWN INDICATION
     Dosage: 1 DOSE (UNITS UNSPECIFIED) ONCE A DAY.??CUMULATIVE DOSE TO FIRST REACTION: 118.958333
     Route: 065
     Dates: start: 20160314
  22. HYDROXOCOBALAMIN [Concomitant]
     Active Substance: HYDROXOCOBALAMIN
     Indication: PRODUCT USED FOR UNKNOWN INDICATION
     Dosage: USE AS DIRECTED
     Route: 065
     Dates: start: 20140609
  23. ISOSORBIDE MONONITRATE. [Concomitant]
     Active Substance: ISOSORBIDE MONONITRATE
     Indication: PRODUCT USED FOR UNKNOWN INDICATION
     Dosage: 1 DOSE (UNITS UNSPECIFIED) PER DAY. CUMULATIVE DOSE TO FIRST REACTION: 1013.0 ) MORNING
     Route: 065
     Dates: start: 20131002, end: 20160608
  24. IBUPROFEN. [Suspect]
     Active Substance: IBUPROFEN
     Route: 065

REACTIONS (2)
  - Peripheral swelling [Unknown]
  - Swelling face [Recovered/Resolved]

NARRATIVE: CASE EVENT DATE: 201607
